FAERS Safety Report 12108548 (Version 1)
Quarter: 2016Q1

REPORT INFORMATION
  Report Type: Report from Study
  Country: EC (occurrence: EC)
  Receive Date: 20160224
  Receipt Date: 20160224
  Transmission Date: 20160526
  Serious: Yes (Hospitalization)
  Sender: FDA-Public Use
  Company Number: EC-ROCHE-1715816

PATIENT
  Sex: Male

DRUGS (1)
  1. AVASTIN [Suspect]
     Active Substance: BEVACIZUMAB
     Indication: CENTRAL NERVOUS SYSTEM NEOPLASM
     Route: 042

REACTIONS (2)
  - Pyrexia [Unknown]
  - Hypoaesthesia [Unknown]
